FAERS Safety Report 19545292 (Version 4)
Quarter: 2022Q1

REPORT INFORMATION
  Report Type: Report from Study
  Country: ES (occurrence: ES)
  Receive Date: 20210713
  Receipt Date: 20220124
  Transmission Date: 20220423
  Serious: Yes (Hospitalization)
  Sender: FDA-Public Use
  Company Number: NVSC2021ES154598

PATIENT
  Age: 55 Year
  Sex: Female

DRUGS (7)
  1. RIBOCICLIB [Suspect]
     Active Substance: RIBOCICLIB
     Indication: Breast cancer
     Dosage: 400 MG
     Route: 048
     Dates: start: 20200218, end: 20210630
  2. LETROZOLE [Suspect]
     Active Substance: LETROZOLE
     Indication: Breast cancer
     Dosage: 2.5 MG, UNK
     Route: 048
     Dates: start: 20200218
  3. DIOVAN [Concomitant]
     Active Substance: VALSARTAN
     Indication: Hypertension
     Dosage: 80 MG, QD
     Route: 065
     Dates: start: 2015
  4. CALCIO + VITAMINA D3 [Concomitant]
     Indication: Prophylaxis
     Dosage: 1 DF, QD
     Route: 065
     Dates: start: 201912
  5. OMEPRAZOLE [Concomitant]
     Active Substance: OMEPRAZOLE
     Indication: Prophylaxis
     Dosage: 20 MG, QD
     Route: 065
     Dates: start: 201909
  6. IBUPROFEN [Concomitant]
     Active Substance: IBUPROFEN
     Indication: Breast pain
     Dosage: PRN
     Route: 065
     Dates: start: 20200507
  7. ACETAMINOPHEN [Concomitant]
     Active Substance: ACETAMINOPHEN
     Indication: Headache
     Dosage: PRN
     Route: 065
     Dates: start: 202006

REACTIONS (1)
  - Cerebrovascular accident [Recovered/Resolved]

NARRATIVE: CASE EVENT DATE: 20210629
